FAERS Safety Report 8783484 (Version 2)
Quarter: 2012Q4

REPORT INFORMATION
  Report Type: 
  Country: GB (occurrence: GB)
  Receive Date: 20120913
  Receipt Date: 20121025
  Transmission Date: 20130627
  Serious: Yes (Other)
  Sender: FDA-Public Use
  Company Number: GB-VERTEX PHARMACEUTICAL INC.-2012-020804

PATIENT
  Age: 50 Year
  Sex: Male
  Weight: 89 kg

DRUGS (5)
  1. INCIVO [Suspect]
     Indication: HEPATITIS C
     Dosage: 750 mg, tid
     Route: 048
     Dates: start: 20120705, end: 20120712
  2. INCIVO [Suspect]
     Dosage: Dosage Form: Tablet
     Route: 048
     Dates: start: 20120705, end: 20120712
  3. PEG INTERFERON [Concomitant]
     Dosage: Dosage Form: Unspecified
     Route: 058
     Dates: start: 20120705
  4. RIBAVIRIN [Concomitant]
     Dosage: Dosage Form: Unspecified
     Route: 065
     Dates: start: 20120705
  5. OMEPRAZOLE [Concomitant]
     Dosage: Dosage Form: Unspecified
     Route: 065

REACTIONS (2)
  - Rash pruritic [Recovered/Resolved]
  - Anal pruritus [Unknown]
